FAERS Safety Report 12394191 (Version 11)
Quarter: 2016Q3

REPORT INFORMATION
  Report Type: Report from Study
  Country: US (occurrence: US)
  Receive Date: 20160523
  Receipt Date: 20160901
  Transmission Date: 20161109
  Serious: Yes (Other)
  Sender: FDA-Public Use
  Company Number: US-SA-2016SA087652

PATIENT
  Age: 34 Year
  Sex: Female

DRUGS (1)
  1. LEMTRADA [Suspect]
     Active Substance: ALEMTUZUMAB
     Indication: MULTIPLE SCLEROSIS
     Route: 041
     Dates: start: 20160425, end: 20160429

REACTIONS (39)
  - Bipolar disorder [Not Recovered/Not Resolved]
  - Mental disorder [Unknown]
  - Hypersomnia [Not Recovered/Not Resolved]
  - Feeling abnormal [Unknown]
  - Feeling hot [Unknown]
  - Urinary tract infection [Unknown]
  - Muscular weakness [Not Recovered/Not Resolved]
  - Burning sensation [Not Recovered/Not Resolved]
  - Pain [Unknown]
  - Dysphonia [Not Recovered/Not Resolved]
  - Walking aid user [Not Recovered/Not Resolved]
  - Nail discolouration [Not Recovered/Not Resolved]
  - Fall [Unknown]
  - Headache [Unknown]
  - Mental disorder [Not Recovered/Not Resolved]
  - Activities of daily living impaired [Not Recovered/Not Resolved]
  - Arthralgia [Unknown]
  - Nervousness [Not Recovered/Not Resolved]
  - Musculoskeletal disorder [Unknown]
  - Asthenia [Not Recovered/Not Resolved]
  - Gait disturbance [Recovered/Resolved]
  - Condition aggravated [Recovered/Resolved]
  - Eye disorder [Not Recovered/Not Resolved]
  - Condition aggravated [Not Recovered/Not Resolved]
  - Paraesthesia oral [Unknown]
  - Back pain [Unknown]
  - Gingival bleeding [Unknown]
  - Fatigue [Not Recovered/Not Resolved]
  - Mood altered [Not Recovered/Not Resolved]
  - Confusional state [Unknown]
  - Crying [Unknown]
  - White blood cell count decreased [Unknown]
  - Anxiety [Not Recovered/Not Resolved]
  - Depression [Not Recovered/Not Resolved]
  - Dysstasia [Not Recovered/Not Resolved]
  - Peripheral coldness [Unknown]
  - Paraesthesia [Unknown]
  - Chromaturia [Recovered/Resolved]
  - Balance disorder [Not Recovered/Not Resolved]

NARRATIVE: CASE EVENT DATE: 2016
